FAERS Safety Report 17974866 (Version 6)
Quarter: 2020Q3

REPORT INFORMATION
  Report Type: Spontaneous
  Country: JP (occurrence: JP)
  Receive Date: 20200702
  Receipt Date: 20200820
  Transmission Date: 20201103
  Serious: Yes (Hospitalization, Other)
  Sender: FDA-Public Use
  Company Number: JP-PFIZER INC-2020250920

PATIENT
  Age: 65 Year
  Sex: Female

DRUGS (5)
  1. IRINOTECAN HCL [Suspect]
     Active Substance: IRINOTECAN HYDROCHLORIDE
     Dosage: UNK
  2. PEGFILGRASTIM [Suspect]
     Active Substance: PEGFILGRASTIM
     Dosage: UNK
  3. OXALIPLATIN. [Suspect]
     Active Substance: OXALIPLATIN
     Dosage: UNK
  4. FLUOROURACIL. [Suspect]
     Active Substance: FLUOROURACIL
     Dosage: UNK
  5. LEVOLEUCOVORIN CALCIUM. [Suspect]
     Active Substance: LEVOLEUCOVORIN CALCIUM
     Dosage: UNK

REACTIONS (1)
  - Aortitis [Recovered/Resolved]
